FAERS Safety Report 17020598 (Version 26)
Quarter: 2024Q3

REPORT INFORMATION
  Report Type: Report from Study
  Country: CO (occurrence: CO)
  Receive Date: 20191112
  Receipt Date: 20240831
  Transmission Date: 20241016
  Serious: Yes (Life-Threatening, Hospitalization, Disabling, Other)
  Sender: NOVARTIS
  Company Number: NVSC2016CO000444

PATIENT
  Age: 48 Year
  Sex: Female
  Weight: 74 kg

DRUGS (27)
  1. ELTROMBOPAG OLAMINE [Suspect]
     Active Substance: ELTROMBOPAG OLAMINE
     Indication: Immune thrombocytopenia
     Dosage: 25 MG, TID
     Route: 048
     Dates: start: 20160615, end: 20161220
  2. ELTROMBOPAG OLAMINE [Suspect]
     Active Substance: ELTROMBOPAG OLAMINE
     Dosage: 50 MG, QD
     Route: 048
     Dates: start: 20160815
  3. ELTROMBOPAG OLAMINE [Suspect]
     Active Substance: ELTROMBOPAG OLAMINE
     Dosage: 75 MG, QD
     Route: 048
     Dates: start: 20160715
  4. ELTROMBOPAG OLAMINE [Suspect]
     Active Substance: ELTROMBOPAG OLAMINE
     Dosage: 75 MG, QD
     Route: 048
     Dates: start: 20160717, end: 20180726
  5. ELTROMBOPAG OLAMINE [Suspect]
     Active Substance: ELTROMBOPAG OLAMINE
     Dosage: 100 MG, QD
     Route: 048
     Dates: start: 20160815
  6. ELTROMBOPAG OLAMINE [Suspect]
     Active Substance: ELTROMBOPAG OLAMINE
     Dosage: 100 MG, QD (2 X 50 MG)
     Route: 048
     Dates: start: 20160815, end: 20161220
  7. ELTROMBOPAG OLAMINE [Suspect]
     Active Substance: ELTROMBOPAG OLAMINE
     Dosage: 1 DF, BID
     Route: 048
     Dates: start: 20170130
  8. ELTROMBOPAG OLAMINE [Suspect]
     Active Substance: ELTROMBOPAG OLAMINE
     Dosage: 25 MG, TID
     Route: 048
     Dates: start: 20170412
  9. ELTROMBOPAG OLAMINE [Suspect]
     Active Substance: ELTROMBOPAG OLAMINE
     Dosage: 2 DF, QD (2 TABLETS OF 25MG DAILY FOR 15 DAYS)
     Route: 048
  10. ELTROMBOPAG OLAMINE [Suspect]
     Active Substance: ELTROMBOPAG OLAMINE
     Dosage: 75 MG, QD
     Route: 048
  11. ELTROMBOPAG OLAMINE [Suspect]
     Active Substance: ELTROMBOPAG OLAMINE
     Dosage: 75 MG, QD (STARTED 4 MONTHS AGO, STOPPED 2 MONTHS AGO)
     Route: 048
  12. ELTROMBOPAG OLAMINE [Suspect]
     Active Substance: ELTROMBOPAG OLAMINE
     Dosage: 25 MG, TID
     Route: 048
  13. ELTROMBOPAG OLAMINE [Suspect]
     Active Substance: ELTROMBOPAG OLAMINE
     Dosage: 25 MG, Q12H
     Route: 048
  14. ELTROMBOPAG OLAMINE [Suspect]
     Active Substance: ELTROMBOPAG OLAMINE
     Dosage: 75 MG, QD
     Route: 048
  15. ELTROMBOPAG OLAMINE [Suspect]
     Active Substance: ELTROMBOPAG OLAMINE
     Dosage: 100 MG, QD (DAILY)
     Route: 048
  16. ELTROMBOPAG OLAMINE [Suspect]
     Active Substance: ELTROMBOPAG OLAMINE
     Dosage: UNK, QD
     Route: 048
  17. ELTROMBOPAG OLAMINE [Suspect]
     Active Substance: ELTROMBOPAG OLAMINE
     Dosage: 50
     Route: 065
  18. METHOTREXATE [Suspect]
     Active Substance: METHOTREXATE
     Indication: Arthritis
     Dosage: UNK (PRE-FILLED AMPOULE)
     Route: 048
  19. PREDNISOLONE [Suspect]
     Active Substance: PREDNISOLONE
     Indication: Thrombocytopenic purpura
     Dosage: 50 MG, QD
     Route: 048
  20. PREDNISOLONE [Suspect]
     Active Substance: PREDNISOLONE
     Indication: Platelet count increased
     Dosage: 50 MG
     Route: 048
  21. PREDNISOLONE [Suspect]
     Active Substance: PREDNISOLONE
     Indication: Inflammation
     Dosage: 6 DOSAGE FORM, QD (5 MG)
     Route: 065
  22. PREDNISOLONE [Suspect]
     Active Substance: PREDNISOLONE
     Indication: Pain
     Dosage: 4 DOSAGE FORM, QD (4 OF 5 MG)
     Route: 042
  23. MIGRANOL [Concomitant]
     Indication: Product used for unknown indication
     Dosage: UNK
     Route: 065
  24. CALCIUM [Concomitant]
     Active Substance: CALCIUM
     Indication: Product used for unknown indication
     Dosage: UNK, QD
     Route: 065
  25. HYDROCODONE [Concomitant]
     Active Substance: HYDROCODONE
     Indication: Product used for unknown indication
     Dosage: 10 MG (1 DOSAGE FORM), Q8H MORE THAN A YEAR AGO
     Route: 065
  26. THIAMINE [Concomitant]
     Active Substance: THIAMINE
     Indication: Immune thrombocytopenia
     Dosage: 25 MG, QD
     Route: 048
  27. PREGABALIN [Concomitant]
     Active Substance: PREGABALIN
     Indication: Product used for unknown indication
     Dosage: 2 DOSAGE FORM, QD
     Route: 065

REACTIONS (90)
  - Platelet count decreased [Recovered/Resolved]
  - Gait disturbance [Unknown]
  - Breast discharge [Not Recovered/Not Resolved]
  - Syncope [Unknown]
  - Swelling face [Not Recovered/Not Resolved]
  - Joint swelling [Unknown]
  - Gingival pain [Unknown]
  - Migraine [Unknown]
  - Pain [Unknown]
  - Spinal pain [Unknown]
  - Discouragement [Not Recovered/Not Resolved]
  - Bronchitis [Unknown]
  - Pneumonia [Unknown]
  - Contusion [Unknown]
  - Influenza [Unknown]
  - Headache [Unknown]
  - Peripheral swelling [Unknown]
  - Pain in extremity [Unknown]
  - Joint effusion [Unknown]
  - Poor peripheral circulation [Unknown]
  - Insomnia [Unknown]
  - Abdominal pain upper [Unknown]
  - Arthralgia [Not Recovered/Not Resolved]
  - Breast disorder female [Unknown]
  - Aphonia [Unknown]
  - Throat cancer [Unknown]
  - Intervertebral disc protrusion [Unknown]
  - Haematological infection [Unknown]
  - Vaginal haemorrhage [Recovered/Resolved]
  - Blister [Unknown]
  - Haemorrhage [Unknown]
  - Post procedural haemorrhage [Unknown]
  - Haemoglobin abnormal [Unknown]
  - Hepatitis [Unknown]
  - Cataract [Not Recovered/Not Resolved]
  - Corneal leukoma [Unknown]
  - Vision blurred [Unknown]
  - Strabismus [Not Recovered/Not Resolved]
  - Swelling [Unknown]
  - Drug effect less than expected [Unknown]
  - Disease recurrence [Unknown]
  - Breast haematoma [Unknown]
  - Malaise [Not Recovered/Not Resolved]
  - Breast pain [Unknown]
  - Somnolence [Unknown]
  - Haematoma [Unknown]
  - Decreased immune responsiveness [Unknown]
  - Feeling of despair [Unknown]
  - Balance disorder [Unknown]
  - Inflammation [Recovered/Resolved]
  - Osteoarthritis [Unknown]
  - Hypoaesthesia [Not Recovered/Not Resolved]
  - Limb discomfort [Unknown]
  - Skin discolouration [Unknown]
  - Hyperhidrosis [Unknown]
  - Condition aggravated [Unknown]
  - Dehydration [Unknown]
  - Paraesthesia [Unknown]
  - Vulvovaginal pruritus [Unknown]
  - Vulvovaginal burning sensation [Unknown]
  - Epistaxis [Unknown]
  - Neck pain [Unknown]
  - Muscular weakness [Unknown]
  - Oropharyngeal pain [Unknown]
  - Thyroid mass [Unknown]
  - Head discomfort [Unknown]
  - Inflammation [Unknown]
  - Cardiovascular disorder [Unknown]
  - Nerve degeneration [Unknown]
  - Nodule [Unknown]
  - Fatigue [Unknown]
  - Pruritus [Unknown]
  - Alopecia [Unknown]
  - Asthenia [Unknown]
  - Bone pain [Unknown]
  - Diarrhoea [Unknown]
  - Vomiting [Unknown]
  - Platelet count abnormal [Unknown]
  - Eye disorder [Unknown]
  - Visual impairment [Unknown]
  - Dysphonia [Not Recovered/Not Resolved]
  - Fibromyalgia [Unknown]
  - Vulvovaginal pain [Unknown]
  - Incorrect dose administered [Unknown]
  - Incorrect route of product administration [Unknown]
  - Product dose omission issue [Unknown]
  - Arthritis [Unknown]
  - Off label use [Unknown]
  - Eye pain [Not Recovered/Not Resolved]
  - Eye inflammation [Not Recovered/Not Resolved]

NARRATIVE: CASE EVENT DATE: 20170519
